FAERS Safety Report 21483881 (Version 1)
Quarter: 2022Q4

REPORT INFORMATION
  Report Type: Spontaneous
  Country: IT (occurrence: IT)
  Receive Date: 20221020
  Receipt Date: 20221020
  Transmission Date: 20230112
  Serious: Yes (Other)
  Sender: FDA-Public Use
  Company Number: IT-SUN PHARMACEUTICAL INDUSTRIES LTD-2022R1-359866

PATIENT
  Age: 7 Year

DRUGS (3)
  1. CARBOPLATIN [Suspect]
     Active Substance: CARBOPLATIN
     Indication: Astrocytoma
     Dosage: UNK
     Route: 065
  2. VINCRISTINE [Suspect]
     Active Substance: VINCRISTINE
     Indication: Astrocytoma
     Dosage: UNK
     Route: 065
  3. ETOPOSIDE [Suspect]
     Active Substance: ETOPOSIDE
     Indication: Astrocytoma
     Dosage: UNK
     Route: 065

REACTIONS (1)
  - Disease progression [Unknown]
